FAERS Safety Report 21660609 (Version 1)
Quarter: 2022Q4

REPORT INFORMATION
  Report Type: Report from Study
  Country: FR (occurrence: FR)
  Receive Date: 20221130
  Receipt Date: 20221130
  Transmission Date: 20230113
  Serious: Yes (Death)
  Sender: FDA-Public Use
  Company Number: FR-JNJFOC-20221155620

PATIENT
  Age: 79 Year
  Sex: Male

DRUGS (3)
  1. DARATUMUMAB [Suspect]
     Active Substance: DARATUMUMAB
     Indication: Plasma cell myeloma
     Dosage: 1 DOSE(S)/WEEK 4 WEEK(S)/CYCLE
     Route: 041
     Dates: start: 20200102
  2. LENALIDOMIDE [Suspect]
     Active Substance: LENALIDOMIDE
     Indication: Plasma cell myeloma
     Dosage: 7 DOSE(S)/WEEK 3 WEEK(S)/CYCLE
     Route: 065
  3. DEXAMETHASONE [Suspect]
     Active Substance: DEXAMETHASONE
     Indication: Plasma cell myeloma
     Dosage: 1 DOSE/WEEK 4 WEEK(S)/CYCLE
     Route: 065

REACTIONS (2)
  - Acute pulmonary oedema [Fatal]
  - Infarction [Fatal]

NARRATIVE: CASE EVENT DATE: 20200102
